FAERS Safety Report 16798630 (Version 1)
Quarter: 2019Q4

REPORT INFORMATION
  Report Type: Spontaneous
  Country: US (occurrence: US)
  Receive Date: 20190911
  Receipt Date: 20190911
  Transmission Date: 20200122
  Serious: Yes (Hospitalization)
  Sender: FDA-Public Use
  Company Number: None

PATIENT
  Age: 47 Year
  Sex: Male

DRUGS (5)
  1. CYCLOBENZAPRINE 10MG TAB [Concomitant]
     Dates: start: 20190809
  2. HUMIRA [Suspect]
     Active Substance: ADALIMUMAB
     Indication: PSORIASIS
     Dosage: ?          OTHER FREQUENCY:EVERY 2 WEEKS;?
     Route: 058
     Dates: start: 20190124
  3. DIAZEPAM 10MG TAB [Concomitant]
     Active Substance: DIAZEPAM
     Dates: start: 20190809
  4. WARFARIN 2MG TAB [Concomitant]
     Dates: start: 20190607
  5. DULOXETINE 60MG CAP [Concomitant]
     Dates: start: 20190809

REACTIONS (1)
  - Pulmonary thrombosis [None]

NARRATIVE: CASE EVENT DATE: 20190829
